FAERS Safety Report 9416691 (Version 1)
Quarter: 2013Q3

REPORT INFORMATION
  Report Type: Spontaneous
  Country: JP (occurrence: None)
  Receive Date: 20130719
  Receipt Date: 20130719
  Transmission Date: 20140515
  Serious: Yes (Life-Threatening)
  Sender: FDA-Public Use
  Company Number: TCI2013A04128

PATIENT
  Age: 43 Year
  Sex: Male

DRUGS (4)
  1. LANSOPRAZOLE (LANSOPRAZOLE) [Suspect]
     Route: 048
  2. ESCITALOPRAM OXALATE [Suspect]
     Indication: AFFECT LABILITY
     Route: 048
  3. ACETYLSALICYLIC ACID [Concomitant]
  4. CLOPIDOGREL BISULFATE [Concomitant]

REACTIONS (2)
  - Ventricular fibrillation [None]
  - Drug interaction [None]
